FAERS Safety Report 8746585 (Version 2)
Quarter: 2012Q4

REPORT INFORMATION
  Report Type: Spontaneous
  Country: US (occurrence: None)
  Receive Date: 20120801
  Receipt Date: 20120814
  Transmission Date: 20130627
  Serious: Yes (Death, Hospitalization)
  Sender: FDA-Public Use
  Company Number: 2012PROUSA01687

PATIENT
  Age: 84 Year
  Sex: Male
  Weight: 119.7 kg

DRUGS (1)
  1. PROVENGE [Suspect]
     Indication: PROSTATE CANCER METASTATIC
     Dosage: 250 ML, SINGLE, INTRAVENOUS
     Route: 042
     Dates: start: 20120713, end: 20120713

REACTIONS (6)
  - Pneumonia [None]
  - Pneumonia bacterial [None]
  - Device related sepsis [None]
  - Pancytopenia [None]
  - Dyspnoea paroxysmal nocturnal [None]
  - Staphylococcal sepsis [None]
